FAERS Safety Report 9648531 (Version 3)
Quarter: 2013Q4

REPORT INFORMATION
  Report Type: Report from Study
  Country: JP (occurrence: JP)
  Receive Date: 20131028
  Receipt Date: 20131216
  Transmission Date: 20140711
  Serious: Yes (Hospitalization)
  Sender: FDA-Public Use
  Company Number: JP-SHIRE-ALL1-2013-01943

PATIENT
  Age: 69 Year
  Sex: Female

DRUGS (18)
  1. 405 (LANTHANUM CARBONATE) [Suspect]
     Indication: HYPERPHOSPHATAEMIA
     Dosage: 2250 MG, UNKNOWN
     Route: 048
     Dates: start: 20100629, end: 20120327
  2. 405 (LANTHANUM CARBONATE) [Suspect]
     Dosage: 2250 MG, UNKNOWN
     Route: 048
     Dates: start: 20090916, end: 20091124
  3. 405 (LANTHANUM CARBONATE) [Suspect]
     Dosage: 1500 MG, UNKNOWN
     Route: 048
     Dates: start: 20090617, end: 20090915
  4. 405 (LANTHANUM CARBONATE) [Suspect]
     Dosage: 750 MG, UNKNOWN
     Route: 048
     Dates: start: 20090526, end: 20090616
  5. OXAROL [Concomitant]
     Indication: HYPOCALCAEMIA
     Dosage: 2.5 ?G, 1X/WEEK
     Route: 042
     Dates: start: 20090901
  6. OXAROL [Concomitant]
     Dosage: 10 ?G, 1X/WEEK
     Route: 042
     Dates: start: 20100629, end: 20120327
  7. ALEISON [Concomitant]
     Indication: PRODUCT USED FOR UNKNOWN INDICATION
     Dosage: 20 MG, UNKNOWN
     Route: 048
  8. ACINON [Concomitant]
     Indication: PRODUCT USED FOR UNKNOWN INDICATION
     Dosage: 75 MG, UNKNOWN
     Route: 048
  9. BAYASPIRIN [Concomitant]
     Indication: PRODUCT USED FOR UNKNOWN INDICATION
     Dosage: 100 MG, UNKNOWN
     Route: 048
  10. DIOVAN [Concomitant]
     Indication: PRODUCT USED FOR UNKNOWN INDICATION
     Dosage: 80 MG, UNKNOWN
     Route: 048
  11. PURSENNID                          /00142207/ [Concomitant]
     Indication: PRODUCT USED FOR UNKNOWN INDICATION
     Dosage: 36 MG, UNKNOWN
     Route: 048
  12. YODEL [Concomitant]
     Indication: PRODUCT USED FOR UNKNOWN INDICATION
     Dosage: 240 MG, UNKNOWN
     Route: 048
  13. EPOGIN [Concomitant]
     Indication: PRODUCT USED FOR UNKNOWN INDICATION
     Dosage: 750 IU, UNKNOWN
     Route: 058
  14. SEVELAMER HYDROCHLORIDE [Concomitant]
     Indication: HYPERPHOSPHATAEMIA
     Dosage: 2250 MG, UNKNOWN
     Route: 048
     Dates: start: 20100629, end: 20120327
  15. SEVELAMER HYDROCHLORIDE [Concomitant]
     Dosage: 3000 MG, UNKNOWN
     Route: 065
     Dates: end: 20090526
  16. SEVELAMER HYDROCHLORIDE [Concomitant]
     Dosage: 3000 MG, UNKNOWN
     Route: 065
     Dates: start: 20091124, end: 20100628
  17. CALCIUM CARBONATE [Concomitant]
     Indication: PRODUCT USED FOR UNKNOWN INDICATION
     Dosage: 3000 MG, UNKNOWN
     Route: 065
     Dates: end: 20090526
  18. CALCIUM CARBONATE [Concomitant]
     Dosage: 3000 MG, UNKNOWN
     Route: 065
     Dates: start: 20091124

REACTIONS (1)
  - Spinal compression fracture [Recovering/Resolving]
